FAERS Safety Report 20184363 (Version 3)
Quarter: 2022Q1

REPORT INFORMATION
  Report Type: Spontaneous
  Country: US (occurrence: US)
  Receive Date: 20211214
  Receipt Date: 20220103
  Transmission Date: 20220423
  Serious: Yes (Death, Hospitalization, Other)
  Sender: FDA-Public Use
  Company Number: US-009507513-2112USA003397

PATIENT
  Sex: Female
  Weight: 77.1 kg

DRUGS (2)
  1. KEYTRUDA [Suspect]
     Active Substance: PEMBROLIZUMAB
     Indication: Non-small cell lung cancer metastatic
     Dosage: 200MG/3WEEKS
     Dates: start: 20210924, end: 20210924
  2. KEYTRUDA [Suspect]
     Active Substance: PEMBROLIZUMAB
     Indication: Metastases to central nervous system

REACTIONS (6)
  - Respiratory failure [Fatal]
  - Renal failure [Fatal]
  - Urinary tract infection [Fatal]
  - Pleural effusion [Fatal]
  - Malignant neoplasm progression [Fatal]
  - Asthenia [Fatal]

NARRATIVE: CASE EVENT DATE: 20210101
